FAERS Safety Report 7522324-1 (Version None)
Quarter: 2011Q2

REPORT INFORMATION
  Report Type: 
  Country: None (occurrence: None)
  Receive Date: 20110603
  Receipt Date: 20110519
  Transmission Date: 20111010
  Serious: Yes (Other)
  Sender: FDA-Public Use
  Company Number: PHHY2011DE43610

PATIENT
  Sex: Male

DRUGS (4)
  1. BETA BLOCKING AGENTS [Interacting]
     Dosage: UNK
     Dates: end: 20110401
  2. GLEEVEC [Interacting]
     Dosage: 400 MG, PER DAY
     Route: 048
     Dates: start: 20080226
  3. VERAPAMIL [Suspect]
     Dosage: 80 MG, TID
  4. GLEEVEC [Interacting]
     Dosage: 400 MG, PER DAY
     Route: 048
     Dates: start: 20070801, end: 20080212

REACTIONS (6)
  - ARRHYTHMIA [None]
  - MYALGIA [None]
  - ARTHRALGIA [None]
  - VENTRICULAR EXTRASYSTOLES [None]
  - GAIT DISTURBANCE [None]
  - DRUG INTERACTION [None]
